FAERS Safety Report 9246087 (Version 2)
Quarter: 2013Q2

REPORT INFORMATION
  Report Type: Spontaneous
  Country: AU (occurrence: AU)
  Receive Date: 20130422
  Receipt Date: 20130501
  Transmission Date: 20140414
  Serious: Yes (Death)
  Sender: FDA-Public Use
  Company Number: PHHY2013AU038931

PATIENT
  Age: 24 Hour
  Sex: Male
  Weight: 3.04 kg

DRUGS (13)
  1. MIDAZOLAM [Suspect]
     Indication: TONIC CONVULSION
  2. LEVETIRACETAM [Suspect]
     Indication: TONIC CONVULSION
  3. PHENOBARBITAL [Suspect]
     Indication: TONIC CONVULSION
  4. PHENYTOIN [Suspect]
     Indication: TONIC CONVULSION
  5. CLONAZEPAM [Suspect]
     Indication: TONIC CONVULSION
  6. CLOBAZAM [Suspect]
     Indication: TONIC CONVULSION
  7. LIDOCAINE [Suspect]
     Indication: TONIC CONVULSION
  8. TOPIRAMATE [Suspect]
     Indication: TONIC CONVULSION
  9. CARBAMAZEPINE [Suspect]
     Indication: TONIC CONVULSION
  10. BIOTIN [Suspect]
     Indication: TONIC CONVULSION
  11. FOLINIC ACID [Suspect]
     Indication: TONIC CONVULSION
  12. PYRIDOXINE [Suspect]
     Indication: TONIC CONVULSION
  13. PYRIDOXAL PHOSPHATE [Suspect]
     Indication: TONIC CONVULSION

REACTIONS (2)
  - Death [Fatal]
  - No therapeutic response [Unknown]
